FAERS Safety Report 13100910 (Version 2)
Quarter: 2017Q1

REPORT INFORMATION
  Report Type: Report from Study
  Country: US (occurrence: US)
  Receive Date: 20170110
  Receipt Date: 20170116
  Transmission Date: 20170428
  Serious: Yes (Other)
  Sender: FDA-Public Use
  Company Number: US-AMGEN-USASL2016126637

PATIENT
  Age: 53 Year
  Sex: Male
  Weight: 81.63 kg

DRUGS (1)
  1. REPATHA [Suspect]
     Active Substance: EVOLOCUMAB
     Indication: PRODUCT USED FOR UNKNOWN INDICATION
     Dosage: 140 MG/ML, Q2WK
     Route: 058
     Dates: start: 201602

REACTIONS (2)
  - Low density lipoprotein increased [Not Recovered/Not Resolved]
  - Blood triglycerides increased [Not Recovered/Not Resolved]

NARRATIVE: CASE EVENT DATE: 20160809
